FAERS Safety Report 4475250-9 (Version None)
Quarter: 2004Q3

REPORT INFORMATION
  Report Type: 
  Country: None (occurrence: None)
  Receive Date: 20040923
  Receipt Date: 20040624
  Transmission Date: 20050211
  Serious: No
  Sender: FDA-Public Use
  Company Number: USA040671070

PATIENT
  Age: 61 Year
  Sex: Female

DRUGS (6)
  1. FORTEO [Suspect]
     Indication: OSTEOPOROSIS
     Dosage: 20 UG DAY
     Dates: start: 20040301
  2. PREDNISONE [Concomitant]
  3. ZOLOFT [Concomitant]
  4. MONOPRIL [Concomitant]
  5. LOZOL [Concomitant]
  6. PROTONIX [Concomitant]

REACTIONS (3)
  - ASTHENIA [None]
  - CONFUSIONAL STATE [None]
  - DIFFICULTY IN WALKING [None]
